FAERS Safety Report 19808863 (Version 1)
Quarter: 2021Q3

REPORT INFORMATION
  Report Type: Spontaneous
  Country: US (occurrence: US)
  Receive Date: 20210903
  Receipt Date: 20210903
  Transmission Date: 20211014
  Serious: Yes (Hospitalization, Other)
  Sender: FDA-Public Use
  Company Number: None

PATIENT
  Age: 71 Year
  Sex: Male
  Weight: 107.4 kg

DRUGS (12)
  1. NITROGLYCERIN SUBLINGUAL [Concomitant]
     Active Substance: NITROGLYCERIN
  2. LEVOTHYROXINE SODIUM. [Concomitant]
     Active Substance: LEVOTHYROXINE SODIUM
  3. OMEPRAZOLE. [Concomitant]
     Active Substance: OMEPRAZOLE
  4. AMOXICILLIN. [Concomitant]
     Active Substance: AMOXICILLIN
  5. ATORVASTATIN CALCIUM. [Concomitant]
     Active Substance: ATORVASTATIN CALCIUM
  6. METOPROLOL SUCCINATE. [Concomitant]
     Active Substance: METOPROLOL SUCCINATE
  7. TADALAFIL. [Concomitant]
     Active Substance: TADALAFIL
  8. ASPIRIN. [Concomitant]
     Active Substance: ASPIRIN
  9. CHOLECALCLFEROL (VITAMIN D3) [Concomitant]
  10. NIVOLUMAB 480MG IV Q4 WEEKS [Suspect]
     Active Substance: NIVOLUMAB
     Indication: LEUKOPLAKIA ORAL
     Dosage: EVERY 28 DAYS 4X PIV WITH + BR OVER 60 MIN
     Dates: start: 20210813
  11. ASCORBIC ACID. [Concomitant]
     Active Substance: ASCORBIC ACID
  12. AMLODIPINE BESYLATE. [Concomitant]
     Active Substance: AMLODIPINE BESYLATE

REACTIONS (5)
  - Atrial fibrillation [None]
  - Atrial flutter [None]
  - Chest discomfort [None]
  - Ejection fraction decreased [None]
  - Heart rate increased [None]

NARRATIVE: CASE EVENT DATE: 20210830
